FAERS Safety Report 25577278 (Version 1)
Quarter: 2025Q3

REPORT INFORMATION
  Report Type: Spontaneous
  Country: US (occurrence: US)
  Receive Date: 20250718
  Receipt Date: 20250718
  Transmission Date: 20251021
  Serious: Yes (Life-Threatening, Hospitalization, Other)
  Sender: SANDOZ
  Company Number: US-SANDOZ-SDZ2025US050863

PATIENT
  Age: 61 Year
  Sex: Female

DRUGS (2)
  1. DOCETAXEL [Suspect]
     Active Substance: DOCETAXEL
     Indication: Breast cancer stage I
     Route: 065
  2. CYCLOPHOSPHAMIDE [Concomitant]
     Active Substance: CYCLOPHOSPHAMIDE
     Indication: Breast cancer stage I
     Route: 065

REACTIONS (4)
  - Pericardial effusion [Recovered/Resolved]
  - Pulmonary embolism [Unknown]
  - Cardiac tamponade [Recovered/Resolved]
  - Pleural effusion [Recovered/Resolved]
